FAERS Safety Report 5138117-9 (Version None)
Quarter: 2006Q4

REPORT INFORMATION
  Report Type: 
  Country: None (occurrence: None)
  Receive Date: 20061030
  Receipt Date: 20060418
  Transmission Date: 20070319
  Serious: No
  Sender: FDA-Public Use
  Company Number: US-GLAXOSMITHKLINE-A0602155A

PATIENT
  Age: 81 Year
  Sex: Male

DRUGS (3)
  1. ADVAIR HFA [Suspect]
     Indication: ASTHMA
     Dosage: 1BLS TWICE PER DAY
     Route: 055
     Dates: start: 20050601, end: 20060414
  2. PROSCAR [Concomitant]
  3. FLOMAX [Concomitant]

REACTIONS (1)
  - DYSPHONIA [None]
